FAERS Safety Report 10302120 (Version 1)
Quarter: 2014Q3

REPORT INFORMATION
  Report Type: Spontaneous
  Country: AT (occurrence: None)
  Receive Date: 20140709
  Receipt Date: 20140709
  Transmission Date: 20150326
  Serious: Yes (Other)
  Sender: FDA-Public Use
  Company Number: DKLU1101366

PATIENT
  Sex: Female

DRUGS (2)
  1. CLOBAZAM (CLOBAZAM) [Suspect]
     Active Substance: CLOBAZAM
     Indication: NERVOUS SYSTEM DISORDER
     Dates: start: 2009, end: 2013
  2. KETAMINE (KETAMINE) [Concomitant]
     Active Substance: KETAMINE

REACTIONS (3)
  - Feeling abnormal [None]
  - Amnesia [None]
  - Psychomotor hyperactivity [None]
